FAERS Safety Report 10888200 (Version 2)
Quarter: 2015Q1

REPORT INFORMATION
  Report Type: Report from Study
  Country: DE (occurrence: DE)
  Receive Date: 20150304
  Receipt Date: 20150317
  Transmission Date: 20150721
  Serious: Yes (Hospitalization, Other)
  Sender: FDA-Public Use
  Company Number: DE-EMD SERONO-8013983

PATIENT
  Age: 48 Year
  Sex: Female
  Weight: 58 kg

DRUGS (13)
  1. BACLOFEN. [Concomitant]
     Active Substance: BACLOFEN
     Indication: PRODUCT USED FOR UNKNOWN INDICATION
     Dosage: 1-1-2 (ONE AT 06:00, ONE AT 14:00 AND TWO AT 22:00)
  2. ORTOTON                            /00047901/ [Concomitant]
     Indication: PRODUCT USED FOR UNKNOWN INDICATION
     Dosage: DOSE: 750 (UNITS UNSPECIFIED)
  3. FINGOLIMOD [Concomitant]
     Active Substance: FINGOLIMOD
     Indication: PRODUCT USED FOR UNKNOWN INDICATION
     Dosage: STARTED IN 2011
  4. URBASON                            /00049601/ [Concomitant]
     Active Substance: METHYLPREDNISOLONE
     Indication: PRODUCT USED FOR UNKNOWN INDICATION
  5. CITALOPRAM [Concomitant]
     Active Substance: CITALOPRAM HYDROBROMIDE
     Indication: PRODUCT USED FOR UNKNOWN INDICATION
     Dosage: DOSE: 20 (UNITS UNSPECIFIED)
     Route: 048
  6. VIGANTOLETTEN [Concomitant]
     Active Substance: CHOLECALCIFEROL
     Indication: PRODUCT USED FOR UNKNOWN INDICATION
  7. BACLOFEN. [Concomitant]
     Active Substance: BACLOFEN
     Dosage: STRENGTH: 10 (UNSPECIFIED UNIT)?1-2-1-2
  8. JONOSTERIL                         /00351401/ [Concomitant]
     Indication: PRODUCT USED FOR UNKNOWN INDICATION
     Route: 042
  9. FAMPYRA [Concomitant]
     Active Substance: DALFAMPRIDINE
     Indication: PRODUCT USED FOR UNKNOWN INDICATION
     Route: 048
  10. ARLEVERT [Concomitant]
     Active Substance: CINNARIZINE\DIMENHYDRINATE
     Indication: PRODUCT USED FOR UNKNOWN INDICATION
     Dosage: DOSE: 20/40 (UNSPECIFIED UNITS).
  11. REBIF [Suspect]
     Active Substance: INTERFERON BETA-1A
     Route: 058
     Dates: start: 200212, end: 20150204
  12. REBIF [Suspect]
     Active Substance: INTERFERON BETA-1A
     Indication: RELAPSING-REMITTING MULTIPLE SCLEROSIS
     Route: 058
     Dates: start: 20021126
  13. VALSARTAN. [Concomitant]
     Active Substance: VALSARTAN
     Indication: PRODUCT USED FOR UNKNOWN INDICATION
     Dosage: DOSE: 80 (UNITS UNSPECIFIED)

REACTIONS (37)
  - Umbilical hernia [Unknown]
  - Injection site abscess [Recovering/Resolving]
  - Drug intolerance [Unknown]
  - Vibration test abnormal [Unknown]
  - Influenza like illness [Unknown]
  - Neurogenic bladder [Unknown]
  - Sensory disturbance [Unknown]
  - Sleep disorder [Unknown]
  - C-reactive protein increased [Recovered/Resolved]
  - Tri-iodothyronine free decreased [Unknown]
  - Hypertension [Unknown]
  - Ataxia [Unknown]
  - Gamma-glutamyltransferase increased [Unknown]
  - Platelet count increased [Unknown]
  - Red blood cell sedimentation rate increased [Unknown]
  - White blood cell count increased [Recovered/Resolved]
  - Aspartate aminotransferase increased [Unknown]
  - Depression [Unknown]
  - Multiple sclerosis relapse [Recovering/Resolving]
  - Dizziness [Unknown]
  - Lipoatrophy [Unknown]
  - Quadriplegia [Unknown]
  - Abscess [Unknown]
  - Staphylococcus test positive [Unknown]
  - Vomiting [Unknown]
  - Dry eye [Unknown]
  - Blood thyroid stimulating hormone decreased [Unknown]
  - Abdominal abscess [Unknown]
  - Muscular weakness [Unknown]
  - Nausea [Unknown]
  - Laboratory test abnormal [Unknown]
  - Abscess limb [Unknown]
  - Ankle fracture [Unknown]
  - Supraventricular tachycardia [Unknown]
  - Dysarthria [Unknown]
  - Blood glucose increased [Recovered/Resolved]
  - Platelet count decreased [Recovered/Resolved]

NARRATIVE: CASE EVENT DATE: 2006
